FAERS Safety Report 21863756 (Version 2)
Quarter: 2023Q1

REPORT INFORMATION
  Report Type: Report from Study
  Country: CO (occurrence: CO)
  Receive Date: 20230116
  Receipt Date: 20230207
  Transmission Date: 20230418
  Serious: Yes (Other)
  Sender: FDA-Public Use
  Company Number: CO-ABBVIE-4195379

PATIENT
  Age: 61 Year
  Sex: Female

DRUGS (2)
  1. SKYRIZI [Suspect]
     Active Substance: RISANKIZUMAB-RZAA
     Indication: Psoriasis
     Route: 058
     Dates: start: 20220628, end: 20220728
  2. ENALAPRIL [Concomitant]
     Active Substance: ENALAPRIL
     Indication: Hypertension
     Dosage: 2 UNKNOWN
     Route: 048

REACTIONS (7)
  - Thyroid cyst [Recovering/Resolving]
  - Influenza [Recovering/Resolving]
  - Burning sensation [Recovering/Resolving]
  - Thyroid cyst [Recovering/Resolving]
  - Aphonia [Unknown]
  - Inflammation [Recovering/Resolving]
  - Dysphonia [Unknown]

NARRATIVE: CASE EVENT DATE: 20221001
